FAERS Safety Report 6860150-7 (Version None)
Quarter: 2010Q3

REPORT INFORMATION
  Report Type: 
  Country: None (occurrence: None)
  Receive Date: 20100720
  Receipt Date: 20100714
  Transmission Date: 20110219
  Serious: Yes (Hospitalization, Other)
  Sender: FDA-Public Use
  Company Number: CH-WYE-G05451010

PATIENT
  Age: 30 Year
  Sex: Female

DRUGS (4)
  1. EFFEXOR [Suspect]
     Indication: POST-TRAUMATIC STRESS DISORDER
     Route: 048
     Dates: start: 20090527
  2. RISPERDAL [Interacting]
     Indication: POST-TRAUMATIC STRESS DISORDER
     Route: 048
     Dates: start: 20090910, end: 20090914
  3. SEROQUEL [Interacting]
     Indication: POST-TRAUMATIC STRESS DISORDER
     Route: 048
     Dates: start: 20090819, end: 20090909
  4. SEROQUEL [Interacting]
     Route: 048
     Dates: start: 20090910

REACTIONS (2)
  - AKATHISIA [None]
  - DRUG INTERACTION [None]
